FAERS Safety Report 20785754 (Version 1)
Quarter: 2022Q2

REPORT INFORMATION
  Report Type: Spontaneous
  Country: US (occurrence: None)
  Receive Date: 20220504
  Receipt Date: 20220504
  Transmission Date: 20220721
  Serious: No
  Sender: FDA-Public Use
  Company Number: US-ROCHE-2838970

PATIENT
  Sex: Female

DRUGS (1)
  1. OCREVUS [Suspect]
     Active Substance: OCRELIZUMAB
     Indication: Relapsing multiple sclerosis
     Dosage: SPLIT DOSE, 15 DAYS APART. ;ONGOING: NO
     Route: 042
     Dates: start: 202105

REACTIONS (1)
  - Pruritus [Recovered/Resolved]

NARRATIVE: CASE EVENT DATE: 20210501
